FAERS Safety Report 14122507 (Version 6)
Quarter: 2018Q2

REPORT INFORMATION
  Report Type: Report from Study
  Country: US (occurrence: US)
  Receive Date: 20171024
  Receipt Date: 20180507
  Transmission Date: 20180711
  Serious: Yes (Other)
  Sender: FDA-Public Use
  Company Number: US-ACTELION-A-NJ2017-161183

PATIENT
  Age: 63 Year
  Sex: Male
  Weight: 102.4 kg

DRUGS (3)
  1. REVATIO [Concomitant]
     Active Substance: SILDENAFIL CITRATE
  2. TRACLEER [Suspect]
     Active Substance: BOSENTAN
     Indication: PULMONARY ARTERIAL HYPERTENSION
     Dosage: 62.5 MG, BID
     Route: 048
  3. OXYGEN. [Concomitant]
     Active Substance: OXYGEN

REACTIONS (21)
  - Weight loss diet [Unknown]
  - Pericardial effusion [Unknown]
  - Chest pain [Unknown]
  - Joint injury [Unknown]
  - Diabetes mellitus [Unknown]
  - Loss of consciousness [Unknown]
  - Arrhythmia [Unknown]
  - Dyspnoea [Unknown]
  - Syncope [Unknown]
  - Palpitations [Unknown]
  - Cough [Unknown]
  - Fatigue [Unknown]
  - Seizure [Unknown]
  - Abdominal distension [Unknown]
  - Pulmonary oedema [Unknown]
  - Oedema [Unknown]
  - Atrial fibrillation [Unknown]
  - Fall [Unknown]
  - Weight decreased [Unknown]
  - Wolff-Parkinson-White syndrome [Unknown]
  - Drug dose omission [Unknown]

NARRATIVE: CASE EVENT DATE: 2017
